FAERS Safety Report 4874400-X (Version None)
Quarter: 2006Q1

REPORT INFORMATION
  Report Type: 
  Country: None (occurrence: None)
  Receive Date: 20060104
  Receipt Date: 20060104
  Transmission Date: 20060701
  Serious: Yes (Hospitalization)
  Sender: FDA-Public Use
  Company Number: None

PATIENT
  Age: 52 Year
  Sex: Male
  Weight: 136.5327 kg

DRUGS (1)
  1. HEPARIN LOCK-FLUSH [Suspect]
     Dosage: 100 UNITS THROUGH TRIPLE LUMEN CATHETER AFTER USE/Q SHIFT

REACTIONS (1)
  - HEPARIN-INDUCED THROMBOCYTOPENIA [None]
